FAERS Safety Report 6910092-3 (Version None)
Quarter: 2010Q3

REPORT INFORMATION
  Report Type: 
  Country: None (occurrence: None)
  Receive Date: 20100806
  Receipt Date: 20100728
  Transmission Date: 20110219
  Serious: Yes (Other)
  Sender: FDA-Public Use
  Company Number: DE-JNJFOC-20100705727

PATIENT
  Sex: Female

DRUGS (8)
  1. RISPERDAL CONSTA [Suspect]
     Indication: PRODUCT USED FOR UNKNOWN INDICATION
     Route: 030
  2. RISPERDAL CONSTA [Suspect]
     Route: 030
  3. RISPERDAL CONSTA [Suspect]
     Route: 030
  4. RISPERDAL [Suspect]
     Indication: PRODUCT USED FOR UNKNOWN INDICATION
     Route: 048
  5. PANTOZOL [Concomitant]
     Route: 048
  6. QUETIAPINE [Concomitant]
     Route: 048
  7. RAMIPRIL [Concomitant]
     Route: 048
  8. THYROXIN [Concomitant]
     Route: 048

REACTIONS (4)
  - APHASIA [None]
  - BRAIN STEM INFARCTION [None]
  - EXTRAPYRAMIDAL DISORDER [None]
  - TRANSIENT ISCHAEMIC ATTACK [None]
